FAERS Safety Report 18240598 (Version 1)
Quarter: 2020Q3

REPORT INFORMATION
  Report Type: Spontaneous
  Country: US (occurrence: US)
  Receive Date: 20200904
  Receipt Date: 20200904
  Transmission Date: 20201103
  Serious: Yes (Life-Threatening, Hospitalization, Disabling)
  Sender: FDA-Public Use
  Company Number: None

PATIENT
  Age: 31 Year
  Sex: Male
  Weight: 104.85 kg

DRUGS (9)
  1. ATOVAQUONE 750MG/5ML [Concomitant]
  2. HUMIRA [Suspect]
     Active Substance: ADALIMUMAB
     Indication: PSORIASIS
     Dosage: ?          QUANTITY:1 INJECTION(S);OTHER FREQUENCY:EVERY 14 DAYS;OTHER ROUTE:SUBQ INJECTION?
  3. VIMPAT [Concomitant]
     Active Substance: LACOSAMIDE
  4. QUETIAPINE FUMARATE 25MG [Concomitant]
     Active Substance: QUETIAPINE FUMARATE
  5. PREDNISONE 50MG [Concomitant]
     Active Substance: PREDNISONE
  6. VITAMIN D [Concomitant]
     Active Substance: VITAMIN D NOS
  7. PANTOPRAZOLE 40MG [Concomitant]
     Active Substance: PANTOPRAZOLE SODIUM
  8. MAGNESIUM 400MG [Concomitant]
     Active Substance: MAGNESIUM
  9. LORAZEPAM 0.5MG [Concomitant]
     Active Substance: LORAZEPAM

REACTIONS (1)
  - Encephalitis autoimmune [None]

NARRATIVE: CASE EVENT DATE: 20200702
